FAERS Safety Report 10567683 (Version 1)
Quarter: 2014Q4

REPORT INFORMATION
  Report Type: Spontaneous
  Country: US (occurrence: US)
  Receive Date: 20141106
  Receipt Date: 20141106
  Transmission Date: 20150529
  Serious: Yes (Other)
  Sender: FDA-Public Use
  Company Number: US-JNJCP-30000248467

PATIENT
  Sex: Female

DRUGS (14)
  1. PREMARIN [Concomitant]
     Active Substance: ESTROGENS, CONJUGATED
     Indication: HORMONE REPLACEMENT THERAPY
     Dosage: 1.25MG ONCE PER DAY
  2. ZOMAX [Concomitant]
     Active Substance: ZOMEPIRAC SODIUM
     Indication: PRODUCT USED FOR UNKNOWN INDICATION
     Dosage: ONCE PER DAY
  3. CLEOCIN [Concomitant]
     Active Substance: CLINDAMYCIN PHOSPHATE
     Indication: PRODUCT USED FOR UNKNOWN INDICATION
     Dosage: 300MG THRICE
  4. COLACE [Concomitant]
     Active Substance: DOCUSATE SODIUM
     Indication: PRODUCT USED FOR UNKNOWN INDICATION
     Dosage: ONE PER DAY
  5. DARVOCET [Concomitant]
     Active Substance: ACETAMINOPHEN\PROPOXYPHENE HYDROCHLORIDE
     Indication: PRODUCT USED FOR UNKNOWN INDICATION
  6. MULTIPLE BIRTH PILL [Concomitant]
     Indication: FERTILITY INCREASED
  7. JOHNSONS BABY PRODUCTS [Suspect]
     Active Substance: UNSPECIFIED INGREDIENT
     Dosage: MANY BOTTLES TWICE DAILY
     Route: 061
  8. TYLENOL WITH CODEINE [Concomitant]
     Active Substance: ACETAMINOPHEN\CODEINE PHOSPHATE
     Indication: PAIN
     Dosage: TWICE PER DAY
  9. PRESCRIPTION MOTRIN [Concomitant]
     Indication: PRODUCT USED FOR UNKNOWN INDICATION
  10. PERCODON [Concomitant]
     Indication: PAIN
  11. VALIUM [Concomitant]
     Active Substance: DIAZEPAM
     Dosage: TWICE PER DAY
  12. PERCOCET [Concomitant]
     Active Substance: ACETAMINOPHEN\OXYCODONE HYDROCHLORIDE
     Indication: PAIN
  13. KEFLEX [Concomitant]
     Active Substance: CEPHALEXIN
     Indication: PRODUCT USED FOR UNKNOWN INDICATION
     Dosage: ONE PILL EVERY SIX HOURS
  14. IRON SUPPLEMENT [Concomitant]
     Active Substance: IRON
     Indication: PRODUCT USED FOR UNKNOWN INDICATION
     Dosage: ONCE PER DAY

REACTIONS (2)
  - Ovarian cancer [Recovered/Resolved]
  - Endometriosis [Recovered/Resolved]
